FAERS Safety Report 5642074-6 (Version None)
Quarter: 2008Q1

REPORT INFORMATION
  Report Type: 
  Country: None (occurrence: None)
  Receive Date: 20080227
  Receipt Date: 20080219
  Transmission Date: 20080703
  Serious: Yes (Hospitalization)
  Sender: FDA-Public Use
  Company Number: GB-PFIZER INC-2008015809

PATIENT
  Sex: Female

DRUGS (3)
  1. DETRUSITOL XL [Suspect]
     Route: 048
  2. ALL OTHER THERAPEUTIC PRODUCTS [Concomitant]
     Route: 048
  3. AMITRIPTYLINE HCL [Concomitant]

REACTIONS (1)
  - RENAL IMPAIRMENT [None]
